FAERS Safety Report 17007681 (Version 1)
Quarter: 2019Q4

REPORT INFORMATION
  Report Type: Spontaneous
  Country: US (occurrence: US)
  Receive Date: 20191108
  Receipt Date: 20191108
  Transmission Date: 20200122
  Serious: No
  Sender: FDA-Public Use
  Company Number: US-CELGENEUS-USA-20191100141

PATIENT
  Age: 59 Year
  Sex: Female

DRUGS (4)
  1. OTEZLA [Suspect]
     Active Substance: APREMILAST
     Dosage: 30 MILLIGRAM
     Route: 048
     Dates: start: 201910
  2. OTEZLA [Suspect]
     Active Substance: APREMILAST
     Indication: PSORIASIS
     Route: 048
     Dates: start: 20191026
  3. OTEZLA [Suspect]
     Active Substance: APREMILAST
     Route: 048
     Dates: start: 201910
  4. OTEZLA [Suspect]
     Active Substance: APREMILAST
     Dosage: 20 MILLIGRAM
     Route: 048
     Dates: start: 201910

REACTIONS (2)
  - Nausea [Recovered/Resolved]
  - Nasal congestion [Unknown]

NARRATIVE: CASE EVENT DATE: 20191026
